FAERS Safety Report 4573833-9 (Version None)
Quarter: 2005Q1

REPORT INFORMATION
  Report Type: 
  Country: None (occurrence: None)
  Receive Date: 20050203
  Receipt Date: 20050120
  Transmission Date: 20050727
  Serious: Yes (Hospitalization)
  Sender: FDA-Public Use
  Company Number: 2005-0007942

PATIENT
  Age: 46 Year
  Sex: Male

DRUGS (3)
  1. TENOFOVIR DISOPROXIL FUMARATE [Suspect]
     Indication: HIV INFECTION
     Dosage: 300 MG, 1 IN 1 D, ORAL
     Route: 048
     Dates: start: 20041013, end: 20041026
  2. GW873140 [Concomitant]
     Indication: HIV INFECTION
     Dosage: SEE IMAGE
     Dates: start: 20041001, end: 20041007
  3. GW873140 [Concomitant]
     Indication: HIV INFECTION
     Dosage: SEE IMAGE
     Dates: start: 20041020, end: 20041026

REACTIONS (9)
  - DIARRHOEA [None]
  - DIVERTICULITIS [None]
  - DIZZINESS [None]
  - DYSURIA [None]
  - GASTRITIS [None]
  - NAUSEA [None]
  - PERIDIVERTICULAR ABSCESS [None]
  - POLLAKIURIA [None]
  - POST PROCEDURAL HAEMATOMA [None]
